FAERS Safety Report 24064616 (Version 5)
Quarter: 2024Q3

REPORT INFORMATION
  Report Type: Spontaneous
  Country: US (occurrence: US)
  Receive Date: 20240709
  Receipt Date: 20240920
  Transmission Date: 20241017
  Serious: Yes (Death, Hospitalization)
  Sender: BOEHRINGER INGELHEIM
  Company Number: US-BoehringerIngelheim-2023-BI-245615

PATIENT
  Age: 76 Year
  Sex: Male
  Weight: 70 kg

DRUGS (3)
  1. OFEV [Suspect]
     Active Substance: NINTEDANIB
     Indication: Pulmonary fibrosis
     Route: 048
     Dates: start: 20230409, end: 20240718
  2. OFEV [Suspect]
     Active Substance: NINTEDANIB
     Route: 048
     Dates: start: 20230903
  3. BREO ELLIPTA [Concomitant]
     Active Substance: FLUTICASONE FUROATE\VILANTEROL TRIFENATATE
     Indication: Product used for unknown indication

REACTIONS (11)
  - Death [Fatal]
  - Gallbladder disorder [Recovered/Resolved]
  - Cerebrovascular accident [Not Recovered/Not Resolved]
  - Hyponatraemia [Unknown]
  - Pneumonia [Recovered/Resolved]
  - Clostridium difficile infection [Unknown]
  - Hypokalaemia [Unknown]
  - Diarrhoea [Not Recovered/Not Resolved]
  - Vomiting [Not Recovered/Not Resolved]
  - Fall [Recovered/Resolved]
  - Skin discolouration [Unknown]

NARRATIVE: CASE EVENT DATE: 20230619
